FAERS Safety Report 7883155-6 (Version None)
Quarter: 2011Q4

REPORT INFORMATION
  Report Type: 
  Country: None (occurrence: None)
  Receive Date: 20111101
  Receipt Date: 20111101
  Transmission Date: 20120403
  Serious: Yes (Death, Hospitalization)
  Sender: FDA-Public Use
  Company Number: None

PATIENT
  Sex: Female
  Weight: 84 kg

DRUGS (4)
  1. TAXOTERE [Suspect]
     Dosage: 506 MG
     Dates: end: 20061006
  2. CYCLOPHOSPHAMIDE [Suspect]
     Dosage: 3700 MG
     Dates: end: 20061006
  3. TAXOL [Suspect]
     Dosage: 336 MG
     Dates: end: 20061110
  4. DOXORUBICIN HCL [Suspect]
     Dosage: 374 MG
     Dates: end: 20061006

REACTIONS (9)
  - FULL BLOOD COUNT DECREASED [None]
  - FATIGUE [None]
  - DECREASED APPETITE [None]
  - MYELODYSPLASTIC SYNDROME [None]
  - PANCYTOPENIA [None]
  - NIGHT SWEATS [None]
  - OROPHARYNGEAL PAIN [None]
  - INFECTION [None]
  - ABDOMINAL PAIN [None]
